FAERS Safety Report 19372204 (Version 2)
Quarter: 2021Q3

REPORT INFORMATION
  Report Type: Other
  Country: IT (occurrence: IT)
  Receive Date: 20210604
  Receipt Date: 20210821
  Transmission Date: 20211014
  Serious: Yes (Death)
  Sender: FDA-Public Use
  Company Number: IT-ROCHE-2840591

PATIENT
  Age: 13 Year
  Sex: Male

DRUGS (18)
  1. LIDOCAIN [Concomitant]
     Active Substance: LIDOCAINE
     Route: 042
  2. THIOPENTAL [Concomitant]
     Active Substance: THIOPENTAL
     Dosage: 2?5 MG/KG/HOUR
  3. LACOSAMIDE. [Concomitant]
     Active Substance: LACOSAMIDE
  4. RITUXIMAB. [Suspect]
     Active Substance: RITUXIMAB
     Indication: ENCEPHALITIS AUTOIMMUNE
     Route: 065
  5. ANAKINRA [Suspect]
     Active Substance: ANAKINRA
     Indication: ENCEPHALITIS AUTOIMMUNE
     Route: 065
  6. MIDAZOLAM. [Concomitant]
     Active Substance: MIDAZOLAM
     Route: 042
  7. LACOSAMIDE. [Concomitant]
     Active Substance: LACOSAMIDE
  8. PHENOBARBITAL. [Concomitant]
     Active Substance: PHENOBARBITAL
  9. PERAMPANEL [Concomitant]
     Active Substance: PERAMPANEL
  10. BORTEZOMIB. [Suspect]
     Active Substance: BORTEZOMIB
     Indication: ENCEPHALITIS AUTOIMMUNE
     Route: 065
  11. CLOBAZAM. [Concomitant]
     Active Substance: CLOBAZAM
  12. LEVETIRACETAM. [Concomitant]
     Active Substance: LEVETIRACETAM
  13. TOPIRAMATE. [Concomitant]
     Active Substance: TOPIRAMATE
  14. KETAMINE [Concomitant]
     Active Substance: KETAMINE
     Route: 042
  15. SIROLIMUS. [Suspect]
     Active Substance: SIROLIMUS
     Indication: ENCEPHALITIS AUTOIMMUNE
     Route: 065
  16. PHENYTOIN. [Concomitant]
     Active Substance: PHENYTOIN
  17. VALPROATE [Concomitant]
     Active Substance: VALPROIC ACID
  18. CARBAMAZEPINE. [Concomitant]
     Active Substance: CARBAMAZEPINE

REACTIONS (3)
  - Off label use [Fatal]
  - Necrotising colitis [Fatal]
  - Septic shock [Fatal]
